FAERS Safety Report 17777504 (Version 1)
Quarter: 2020Q2

REPORT INFORMATION
  Report Type: Spontaneous
  Country: US (occurrence: US)
  Receive Date: 20200513
  Receipt Date: 20200513
  Transmission Date: 20200714
  Serious: No
  Sender: FDA-Public Use
  Company Number: US-MYLANLABS-2020M1045503

PATIENT
  Sex: Female

DRUGS (1)
  1. ESTRADIOL. [Suspect]
     Active Substance: ESTRADIOL
     Indication: HORMONE THERAPY
     Dosage: CHANGE TWICE A WEEK
     Route: 062

REACTIONS (7)
  - Feeling abnormal [Recovered/Resolved]
  - Drug ineffective [Recovered/Resolved]
  - Hormone level abnormal [Recovered/Resolved]
  - Depressed mood [Recovered/Resolved]
  - Product adhesion issue [Unknown]
  - Hirsutism [Recovered/Resolved]
  - Asthenia [Recovered/Resolved]
